FAERS Safety Report 6612578-8 (Version None)
Quarter: 2010Q1

REPORT INFORMATION
  Report Type: 
  Country: None (occurrence: None)
  Receive Date: 20100223
  Receipt Date: 20100212
  Transmission Date: 20100710
  Serious: Yes (Other)
  Sender: FDA-Public Use
  Company Number: 006985

PATIENT
  Sex: Female

DRUGS (1)
  1. LEVETIRACETAM [Suspect]
     Indication: EPILEPSY
     Dosage: (1500 MG, 100 MG/ML ORAL)
     Route: 048
     Dates: start: 20080201

REACTIONS (2)
  - GRAND MAL CONVULSION [None]
  - PRODUCT QUALITY ISSUE [None]
